FAERS Safety Report 5728547-6 (Version None)
Quarter: 2008Q2

REPORT INFORMATION
  Report Type: 
  Country: None (occurrence: None)
  Receive Date: 20080506
  Receipt Date: 20080424
  Transmission Date: 20081010
  Serious: Yes (Hospitalization)
  Sender: FDA-Public Use
  Company Number: FR-PFIZER INC-2008035044

PATIENT
  Sex: Female
  Weight: 61 kg

DRUGS (6)
  1. SU-011,248 [Suspect]
     Indication: THYROID CANCER
  2. OMEPRAZOLE [Concomitant]
     Dates: start: 20000101
  3. MIANSERIN [Concomitant]
     Dates: start: 19980101
  4. OTHER HYPNOTICS AND SEDATIVES [Concomitant]
     Dates: start: 20080316
  5. HYPERIUM [Concomitant]
     Dates: start: 20080320
  6. LEVOTHYROXINE SODIUM [Concomitant]
     Dates: start: 19990101

REACTIONS (1)
  - NO ADVERSE EVENT [None]
